FAERS Safety Report 6427556-1 (Version None)
Quarter: 2009Q4

REPORT INFORMATION
  Report Type: 
  Country: None (occurrence: None)
  Receive Date: 20091030
  Receipt Date: 20091012
  Transmission Date: 20100525
  Serious: Yes (Other)
  Sender: FDA-Public Use
  Company Number: 20090469

PATIENT
  Age: 57 Year
  Sex: Female

DRUGS (2)
  1. DEHYDRATED ALCOHOL INJECTION, USP (8571-10) [Suspect]
     Indication: CARDIAC ABLATION
     Dosage: 2 ML OVER 5 MINUTES
  2. BETA ADRENERGIC RECEPTOR ANTAGONIST [Concomitant]

REACTIONS (2)
  - OFF LABEL USE [None]
  - VENTRICULAR FIBRILLATION [None]
